FAERS Safety Report 6044459-5 (Version None)
Quarter: 2009Q1

REPORT INFORMATION
  Report Type: 
  Country: None (occurrence: None)
  Receive Date: 20090120
  Receipt Date: 20090108
  Transmission Date: 20090719
  Serious: Yes (Death)
  Sender: FDA-Public Use
  Company Number: US-PFIZER INC-2008151178

PATIENT
  Age: 38 Year
  Sex: Male

DRUGS (1)
  1. CHANTIX [Suspect]

REACTIONS (4)
  - CARDIAC FAILURE [None]
  - CONVULSION [None]
  - MICTURITION URGENCY [None]
  - MIDDLE INSOMNIA [None]
